FAERS Safety Report 9222004 (Version 2)
Quarter: 2013Q2

REPORT INFORMATION
  Report Type: Report from Study
  Country: FR (occurrence: FR)
  Receive Date: 20130410
  Receipt Date: 20130501
  Transmission Date: 20140414
  Serious: Yes (Other)
  Sender: FDA-Public Use
  Company Number: FR-US-EMD SERONO, INC.-7202812

PATIENT
  Age: 52 Year
  Sex: Female
  Weight: 86 kg

DRUGS (2)
  1. BLINDED STUDY MEDICATION [Suspect]
     Indication: VITAMIN D DEFICIENCY
     Route: 048
     Dates: start: 20130203, end: 20130318
  2. REBIF [Suspect]
     Indication: RELAPSING-REMITTING MULTIPLE SCLEROSIS
     Route: 058
     Dates: start: 20121008

REACTIONS (1)
  - Hypercalcaemia [Recovered/Resolved]
